FAERS Safety Report 4852059-5 (Version None)
Quarter: 2005Q4

REPORT INFORMATION
  Report Type: 
  Country: None (occurrence: None)
  Receive Date: 20051213
  Receipt Date: 20051202
  Transmission Date: 20060501
  Serious: Yes (Life-Threatening, Hospitalization)
  Sender: FDA-Public Use
  Company Number: PL-ROCHE-427089

PATIENT
  Age: 19 Year
  Sex: Male
  Weight: 65 kg

DRUGS (2)
  1. PEG-INTERFERON A-2A (RO 25-8310) [Suspect]
     Indication: HEPATITIS B
     Route: 058
     Dates: start: 20051117, end: 20051201
  2. RIBAVIRIN [Suspect]
     Indication: HEPATITIS B
     Route: 048
     Dates: start: 20051117, end: 20051201

REACTIONS (4)
  - CONVULSION [None]
  - FALL [None]
  - LOSS OF CONSCIOUSNESS [None]
  - SKULL FRACTURE [None]
